FAERS Safety Report 4391608-0 (Version None)
Quarter: 2004Q3

REPORT INFORMATION
  Report Type: 
  Country: None (occurrence: None)
  Receive Date: 20040702
  Receipt Date: 20040426
  Transmission Date: 20050211
  Serious: Yes (Other)
  Sender: FDA-Public Use
  Company Number: 2004UW08435

PATIENT
  Age: 72 Year
  Sex: Female
  Weight: 63.5036 kg

DRUGS (2)
  1. CRESTOR [Suspect]
     Indication: HYPERCHOLESTEROLAEMIA
     Dosage: 10 MG QD PO
     Route: 048
     Dates: end: 20040201
  2. TRICOR [Concomitant]

REACTIONS (2)
  - BLADDER SPASM [None]
  - MYALGIA [None]
